FAERS Safety Report 6360222-X (Version None)
Quarter: 2009Q3

REPORT INFORMATION
  Report Type: 
  Country: None (occurrence: None)
  Receive Date: 20090917
  Receipt Date: 20090910
  Transmission Date: 20100115
  Serious: Yes (Death, Life-Threatening, Hospitalization, Other)
  Sender: FDA-Public Use
  Company Number: US-BAXTER-2009BH006610

PATIENT
  Age: 64 Year
  Sex: Female

DRUGS (14)
  1. HEPARIN SODIUM INJECTION [Suspect]
     Indication: INTRAVENOUS CATHETER MANAGEMENT
     Route: 042
     Dates: start: 20070222
  2. HEPARIN SODIUM INJECTION [Suspect]
     Route: 042
     Dates: start: 20070416, end: 20070422
  3. HEPARIN SODIUM INJECTION [Suspect]
     Route: 042
     Dates: start: 20070423, end: 20070424
  4. GLYBURIDE [Concomitant]
     Indication: DRUG USE FOR UNKNOWN INDICATION
     Route: 065
  5. METFORMIN HCL [Concomitant]
     Indication: DRUG USE FOR UNKNOWN INDICATION
     Route: 065
  6. MICARDIS [Concomitant]
     Indication: BLOOD PRESSURE
     Route: 065
  7. NORVASC [Concomitant]
     Indication: BLOOD PRESSURE
     Route: 048
  8. CIPRO [Concomitant]
     Indication: DRUG USE FOR UNKNOWN INDICATION
     Route: 048
  9. NYSTATIN [Concomitant]
     Indication: DRUG USE FOR UNKNOWN INDICATION
     Route: 061
  10. FERROUS SULFATE TAB [Concomitant]
     Indication: DRUG USE FOR UNKNOWN INDICATION
     Route: 048
  11. COLACE [Concomitant]
     Indication: DRUG USE FOR UNKNOWN INDICATION
     Route: 048
  12. GLYBURIDE [Concomitant]
     Route: 048
  13. FLAGYL [Concomitant]
     Indication: DRUG USE FOR UNKNOWN INDICATION
     Route: 048
  14. DAILY MULTIVITAMIN [Concomitant]
     Indication: VITAMIN SUPPLEMENTATION
     Route: 048

REACTIONS (23)
  - ATRIAL FIBRILLATION [None]
  - COLON CANCER [None]
  - DEEP VEIN THROMBOSIS [None]
  - DISEASE RECURRENCE [None]
  - HEART RATE DECREASED [None]
  - HEART RATE IRREGULAR [None]
  - HYPOTENSION [None]
  - HYPOXIA [None]
  - INTESTINAL ANASTOMOSIS COMPLICATION [None]
  - LETHARGY [None]
  - MULTI-ORGAN FAILURE [None]
  - NAUSEA [None]
  - PSEUDOMONAS INFECTION [None]
  - PULMONARY EMBOLISM [None]
  - PUPIL FIXED [None]
  - RECTAL POLYP [None]
  - RESPIRATORY FAILURE [None]
  - SEPTIC SHOCK [None]
  - SMALL INTESTINAL OBSTRUCTION [None]
  - SUBCLAVIAN VEIN THROMBOSIS [None]
  - TACHYPNOEA [None]
  - UNRESPONSIVE TO STIMULI [None]
  - VOMITING [None]
